FAERS Safety Report 18195041 (Version 1)
Quarter: 2020Q3

REPORT INFORMATION
  Report Type: Spontaneous
  Country: KW (occurrence: KW)
  Receive Date: 20200826
  Receipt Date: 20200826
  Transmission Date: 20201103
  Serious: Yes (Other)
  Sender: FDA-Public Use
  Company Number: KW-APNAR-000071

PATIENT
  Age: 17 Year
  Sex: Male

DRUGS (1)
  1. BUPROPION. [Suspect]
     Active Substance: BUPROPION
     Indication: MAJOR DEPRESSION
     Dosage: FOR A WEEK THEN BID THEREAFTER, 225 MG/D

REACTIONS (2)
  - Electrocardiogram QT prolonged [Recovered/Resolved]
  - Presyncope [Recovered/Resolved]
